FAERS Safety Report 5195992-X (Version None)
Quarter: 2006Q4

REPORT INFORMATION
  Report Type: 
  Country: None (occurrence: None)
  Receive Date: 20061227
  Receipt Date: 20061227
  Transmission Date: 20070319
  Serious: Yes (Life-Threatening, Hospitalization, Disabling, Other)
  Sender: FDA-Public Use
  Company Number: None

PATIENT
  Age: 22 Year
  Sex: Female
  Weight: 79.3795 kg

DRUGS (1)
  1. ORTHO EVRA [Suspect]
     Indication: CONTRACEPTION
     Dosage: 1 PATCH 1 PATCH PER WEEK TRANSDERMAL
     Route: 062
     Dates: start: 20050201, end: 20050405

REACTIONS (7)
  - CHEST DISCOMFORT [None]
  - DEEP VEIN THROMBOSIS [None]
  - DEPRESSION [None]
  - FALL [None]
  - PAIN [None]
  - PULMONARY EMBOLISM [None]
  - RESPIRATORY ARREST [None]
